FAERS Safety Report 5235376-9 (Version None)
Quarter: 2007Q1

REPORT INFORMATION
  Report Type: 
  Country: None (occurrence: None)
  Receive Date: 20070208
  Receipt Date: 20070208
  Transmission Date: 20070707
  Serious: Yes (Death)
  Sender: FDA-Public Use
  Company Number: None

PATIENT
  Age: 72 Year
  Sex: Female
  Weight: 43.8175 kg

DRUGS (2)
  1. GEMCITABINE [Suspect]
     Indication: PANCREATIC CARCINOMA
     Dosage: 1000MG/M2 D 1,8,15 Q 28 D IV DRIP
     Route: 041
     Dates: start: 20061127, end: 20070118
  2. ERLOTINIB/NOVASOY [Suspect]
     Indication: PANCREATIC CARCINOMA
     Dosage: D 1-28 Q 28 D PO
     Route: 048
     Dates: start: 20061027, end: 20070118

REACTIONS (2)
  - MALIGNANT NEOPLASM PROGRESSION [None]
  - PANCREATIC CARCINOMA [None]
